FAERS Safety Report 7337187-7 (Version None)
Quarter: 2011Q1

REPORT INFORMATION
  Report Type: 
  Country: None (occurrence: None)
  Receive Date: 20110308
  Receipt Date: 20110301
  Transmission Date: 20110831
  Serious: No
  Sender: FDA-Public Use
  Company Number: US-PFIZER INC-2010182180

PATIENT
  Sex: Male
  Weight: 86.168 kg

DRUGS (3)
  1. LIPITOR [Suspect]
     Indication: TYPE 2 DIABETES MELLITUS
     Dosage: 10 MG, DAILY
     Route: 048
     Dates: start: 20090101
  2. VALSARTAN [Concomitant]
     Indication: HYPERTENSION
     Dosage: 160/25, UNK
  3. METFORMIN [Concomitant]
     Indication: TYPE 2 DIABETES MELLITUS
     Dosage: UNK, DAILY

REACTIONS (2)
  - BLOOD CHOLESTEROL DECREASED [None]
  - LOW DENSITY LIPOPROTEIN DECREASED [None]
